FAERS Safety Report 14794175 (Version 1)
Quarter: 2018Q2

REPORT INFORMATION
  Report Type: Spontaneous
  Country: DE (occurrence: DE)
  Receive Date: 20180423
  Receipt Date: 20180423
  Transmission Date: 20180711
  Serious: Yes (Hospitalization, Other)
  Sender: FDA-Public Use
  Company Number: PHHY2018DE068433

PATIENT
  Age: 42 Year
  Sex: Male

DRUGS (4)
  1. OMEPRAZOLE. [Suspect]
     Active Substance: OMEPRAZOLE
     Indication: GASTROINTESTINAL ULCER
     Dosage: 20 MG, QD
     Route: 048
  2. OMEPRAZOLE. [Suspect]
     Active Substance: OMEPRAZOLE
     Dosage: 40 MG, QD
     Route: 048
  3. METRONIDAZOLE. [Concomitant]
     Active Substance: METRONIDAZOLE
     Indication: GASTROINTESTINAL ULCER
     Dosage: 800 MG, QD
     Route: 048
  4. CLARITHROMYCIN. [Concomitant]
     Active Substance: CLARITHROMYCIN
     Indication: GASTROINTESTINAL ULCER
     Dosage: 500 MG, QD
     Route: 048

REACTIONS (10)
  - Papule [Recovered/Resolved]
  - Macule [Recovered/Resolved]
  - Hypersensitivity vasculitis [Recovered/Resolved]
  - Hypersensitivity [Recovered/Resolved]
  - Erythema [Recovered/Resolved]
  - Blister [Recovered/Resolved]
  - Petechiae [Recovered/Resolved]
  - Haemorrhage [Recovered/Resolved]
  - Skin lesion [Recovered/Resolved]
  - Vasculitis necrotising [Recovered/Resolved]
